FAERS Safety Report 18213531 (Version 11)
Quarter: 2022Q3

REPORT INFORMATION
  Report Type: Spontaneous
  Country: US (occurrence: US)
  Receive Date: 20200831
  Receipt Date: 20220824
  Transmission Date: 20221027
  Serious: No
  Sender: FDA-Public Use
  Company Number: US-PFIZER INC-2020327854

PATIENT
  Age: 77 Year
  Sex: Female

DRUGS (5)
  1. LYRICA [Suspect]
     Active Substance: PREGABALIN
     Indication: Neuropathy peripheral
     Dosage: 330 MG
  2. LYRICA [Suspect]
     Active Substance: PREGABALIN
     Dosage: 100 MG
  3. LYRICA [Suspect]
     Active Substance: PREGABALIN
     Dosage: 100 MG, 4X/DAY
     Route: 048
  4. LYRICA [Suspect]
     Active Substance: PREGABALIN
     Dosage: 100 MG, 1X/DAY
     Route: 048
  5. LYRICA [Suspect]
     Active Substance: PREGABALIN
     Dosage: 75 MG, 4X/DAY
     Route: 048

REACTIONS (7)
  - Pain [Unknown]
  - Blood pressure decreased [Unknown]
  - Dizziness [Unknown]
  - Drug ineffective [Unknown]
  - Poor quality product administered [Unknown]
  - Product colour issue [Unknown]
  - Intentional product use issue [Unknown]
